FAERS Safety Report 13306321 (Version 7)
Quarter: 2020Q1

REPORT INFORMATION
  Report Type: Spontaneous
  Country: US (occurrence: US)
  Receive Date: 20170308
  Receipt Date: 20200218
  Transmission Date: 20200409
  Serious: Yes (Other)
  Sender: FDA-Public Use
  Company Number: US-PFIZER INC-2017095074

PATIENT
  Age: 68 Year
  Sex: Female
  Weight: 77.98 kg

DRUGS (4)
  1. NIFEDIPINE. [Concomitant]
     Active Substance: NIFEDIPINE
     Indication: RAYNAUD^S PHENOMENON
     Dosage: 60 MG, 1X/DAY
     Route: 048
  2. GABAPENTIN. [Concomitant]
     Active Substance: GABAPENTIN
     Indication: NEURALGIA
     Dosage: 600 MG, 2X/DAY
  3. REVATIO [Suspect]
     Active Substance: SILDENAFIL CITRATE
     Indication: DYSPNOEA
  4. REVATIO [Suspect]
     Active Substance: SILDENAFIL CITRATE
     Indication: PULMONARY HYPERTENSION
     Dosage: 20 MG, THREE TIMES A DAY
     Route: 048

REACTIONS (11)
  - Back disorder [Unknown]
  - Intentional product misuse [Unknown]
  - Cough [Recovered/Resolved]
  - Influenza [Not Recovered/Not Resolved]
  - Gait disturbance [Unknown]
  - Herpes zoster [Recovered/Resolved]
  - Pain [Unknown]
  - Neuralgia [Recovering/Resolving]
  - Malaise [Unknown]
  - Muscle strain [Unknown]
  - Body height decreased [Unknown]

NARRATIVE: CASE EVENT DATE: 2017
